FAERS Safety Report 14725594 (Version 3)
Quarter: 2020Q2

REPORT INFORMATION
  Report Type: Spontaneous
  Country: US (occurrence: US)
  Receive Date: 20180406
  Receipt Date: 20200526
  Transmission Date: 20200713
  Serious: Yes (Other)
  Sender: FDA-Public Use
  Company Number: US-UCBSA-2018014370

PATIENT
  Age: 45 Year
  Sex: Female

DRUGS (1)
  1. CIMZIA [Suspect]
     Active Substance: CERTOLIZUMAB PEGOL
     Indication: CROHN^S DISEASE
     Dosage: 200 MG, EV 2 WEEKS(QOW), NDC #: 50474-0710-79
     Route: 058
     Dates: start: 20180307

REACTIONS (2)
  - Clostridium difficile infection [Not Recovered/Not Resolved]
  - Crohn^s disease [Unknown]

NARRATIVE: CASE EVENT DATE: 2018
